FAERS Safety Report 4807944-7 (Version None)
Quarter: 2005Q4

REPORT INFORMATION
  Report Type: 
  Country: None (occurrence: None)
  Receive Date: 20051021
  Receipt Date: 20051012
  Transmission Date: 20060501
  Serious: Yes (Other)
  Sender: FDA-Public Use
  Company Number: TPA2005A01171

PATIENT
  Age: 90 Year
  Sex: Female
  Weight: 47.6277 kg

DRUGS (9)
  1. ACTOS [Suspect]
     Indication: DIABETES MELLITUS NON-INSULIN-DEPENDENT
     Dosage: SEE IMAGE
     Route: 048
     Dates: start: 20020901, end: 20030101
  2. ACTOS [Suspect]
     Indication: DIABETES MELLITUS NON-INSULIN-DEPENDENT
     Dosage: SEE IMAGE
     Route: 048
     Dates: start: 20030101
  3. ACTONEL [Concomitant]
  4. ZOCOR [Concomitant]
  5. GLIPIZIDE [Concomitant]
  6. HCTZ (HYDROCHLOROTHIAZIDE) [Concomitant]
  7. NIFEDIAC (NIFEDIPINE) [Concomitant]
  8. BENAZIPRIC (BENAZEPRIL) [Concomitant]
  9. ISOSORBIDE (ISOSORBIDE) [Concomitant]

REACTIONS (1)
  - BREAST CANCER FEMALE [None]
